FAERS Safety Report 24612801 (Version 8)
Quarter: 2025Q1

REPORT INFORMATION
  Report Type: Spontaneous
  Country: CA (occurrence: CA)
  Receive Date: 20241113
  Receipt Date: 20250321
  Transmission Date: 20250409
  Serious: Yes (Other)
  Sender: PFIZER
  Company Number: CA-PFIZER INC-PV202400134480

PATIENT
  Age: 41 Year
  Sex: Female

DRUGS (22)
  1. TRAZIMERA [Suspect]
     Active Substance: TRASTUZUMAB-QYYP
     Indication: Triple negative breast cancer
     Dosage: 712 MG, EVERY 3 WEEKS
     Dates: start: 20241108
  2. TRAZIMERA [Suspect]
     Active Substance: TRASTUZUMAB-QYYP
     Dosage: 712 MG, EVERY 3 WEEKS
     Dates: start: 20241128
  3. TRAZIMERA [Suspect]
     Active Substance: TRASTUZUMAB-QYYP
     Route: 042
     Dates: start: 20241219
  4. TRAZIMERA [Suspect]
     Active Substance: TRASTUZUMAB-QYYP
     Route: 042
     Dates: start: 20241219
  5. TRAZIMERA [Suspect]
     Active Substance: TRASTUZUMAB-QYYP
     Route: 042
     Dates: start: 20250109
  6. TRAZIMERA [Suspect]
     Active Substance: TRASTUZUMAB-QYYP
     Route: 042
     Dates: start: 20250109
  7. TRAZIMERA [Suspect]
     Active Substance: TRASTUZUMAB-QYYP
     Route: 042
     Dates: start: 20250130
  8. TRAZIMERA [Suspect]
     Active Substance: TRASTUZUMAB-QYYP
     Route: 042
     Dates: start: 20250220
  9. TRAZIMERA [Suspect]
     Active Substance: TRASTUZUMAB-QYYP
     Route: 042
     Dates: start: 20250220
  10. TRAZIMERA [Suspect]
     Active Substance: TRASTUZUMAB-QYYP
     Route: 042
     Dates: start: 20250313
  11. TRAZIMERA [Suspect]
     Active Substance: TRASTUZUMAB-QYYP
     Route: 042
     Dates: start: 20250313
  12. BUPROPION [Concomitant]
     Active Substance: BUPROPION
  13. CAPECITABINE [Concomitant]
     Active Substance: CAPECITABINE
     Indication: Triple negative breast cancer
  14. ESCITALOPRAM [Concomitant]
     Active Substance: ESCITALOPRAM OXALATE
  15. FAMOTIDINE [Concomitant]
     Active Substance: FAMOTIDINE
     Indication: Premedication
     Route: 048
     Dates: start: 20241127
  16. FAMOTIDINE [Concomitant]
     Active Substance: FAMOTIDINE
     Route: 048
     Dates: start: 20241128
  17. MONTELUKAST [Concomitant]
     Active Substance: MONTELUKAST
     Indication: Premedication
     Route: 048
     Dates: start: 20241127
  18. MONTELUKAST [Concomitant]
     Active Substance: MONTELUKAST
     Route: 048
     Dates: start: 20241128
  19. PEMBROLIZUMAB [Concomitant]
     Active Substance: PEMBROLIZUMAB
     Indication: Triple negative breast cancer
  20. RUPATADINE [Concomitant]
     Active Substance: RUPATADINE
     Indication: Premedication
     Route: 048
     Dates: start: 20241127
  21. SYNTHROID [Concomitant]
     Active Substance: LEVOTHYROXINE SODIUM
  22. SYNTHROID [Concomitant]
     Active Substance: LEVOTHYROXINE SODIUM
     Dosage: 0.175 MG, DAILY

REACTIONS (15)
  - Chest discomfort [Not Recovered/Not Resolved]
  - Back pain [Not Recovered/Not Resolved]
  - Musculoskeletal stiffness [Not Recovered/Not Resolved]
  - Pneumonia bacterial [Unknown]
  - Nausea [Recovered/Resolved]
  - Hyperhidrosis [Recovered/Resolved]
  - Dizziness [Recovered/Resolved]
  - Feeling cold [Unknown]
  - Blood pressure fluctuation [Unknown]
  - Blood pressure diastolic increased [Recovering/Resolving]
  - Blood pressure increased [Unknown]
  - Fatigue [Unknown]
  - Diarrhoea [Unknown]
  - Palmar-plantar erythrodysaesthesia syndrome [Not Recovered/Not Resolved]
  - Off label use [Unknown]

NARRATIVE: CASE EVENT DATE: 20241108
